FAERS Safety Report 8006619-3 (Version None)
Quarter: 2011Q4

REPORT INFORMATION
  Report Type: 
  Country: None (occurrence: None)
  Receive Date: 20111129
  Receipt Date: 20111118
  Transmission Date: 20120403
  Serious: Yes (Hospitalization)
  Sender: FDA-Public Use
  Company Number: 2011027413

PATIENT
  Age: 56 Year
  Sex: Female
  Weight: 83.4619 kg

DRUGS (23)
  1. SODIUM CHLORIDE 0.9% [Concomitant]
  2. SINGULAIR [Concomitant]
  3. PRAVASTATIN [Concomitant]
  4. LORAZEPAM [Concomitant]
  5. ZEMAIRA [Suspect]
  6. METFORMIN HCL [Concomitant]
  7. IBUPROFEN [Concomitant]
  8. ADVAIR DISKUS 100/50 [Concomitant]
  9. SPIRIVA [Concomitant]
  10. CARVEDILOL [Concomitant]
  11. EFFEXOR [Concomitant]
  12. FOLIC ACID [Concomitant]
  13. KLOR-CON [Concomitant]
  14. BENZONATATE [Concomitant]
  15. ZEMAIRA [Suspect]
     Indication: ALPHA-1 ANTI-TRYPSIN DEFICIENCY
     Dosage: SEE IMAGE
     Route: 042
     Dates: start: 20110105
  16. ZEMAIRA [Suspect]
     Indication: CHRONIC OBSTRUCTIVE PULMONARY DISEASE
     Dosage: SEE IMAGE
     Route: 042
     Dates: start: 20110105
  17. ZEMAIRA [Suspect]
     Indication: ALPHA-1 ANTI-TRYPSIN DEFICIENCY
     Dosage: SEE IMAGE
     Route: 042
     Dates: start: 20101117
  18. ZEMAIRA [Suspect]
     Indication: CHRONIC OBSTRUCTIVE PULMONARY DISEASE
     Dosage: SEE IMAGE
     Route: 042
     Dates: start: 20101117
  19. ZEMAIRA [Suspect]
     Indication: ALPHA-1 ANTI-TRYPSIN DEFICIENCY
     Dosage: SEE IMAGE
     Route: 042
     Dates: start: 20101101
  20. ZEMAIRA [Suspect]
     Indication: CHRONIC OBSTRUCTIVE PULMONARY DISEASE
     Dosage: SEE IMAGE
     Route: 042
     Dates: start: 20101101
  21. FUROSEMIDE [Concomitant]
  22. ZYRTEC [Concomitant]
  23. ALBUTEROL [Concomitant]

REACTIONS (4)
  - LIP SWELLING [None]
  - INFUSION RELATED REACTION [None]
  - PARAESTHESIA [None]
  - HYPOAESTHESIA [None]
